FAERS Safety Report 12894437 (Version 1)
Quarter: 2016Q4

REPORT INFORMATION
  Report Type: Spontaneous
  Country: BE (occurrence: BE)
  Receive Date: 20161028
  Receipt Date: 20161028
  Transmission Date: 20170207
  Serious: Yes (Life-Threatening, Other)
  Sender: FDA-Public Use
  Company Number: BE-AIRGAS USA-1059021

PATIENT
  Age: 42 Year
  Sex: Female

DRUGS (13)
  1. FOSINOPRIL NA [Concomitant]
     Active Substance: FOSINOPRIL SODIUM
  2. ETHINYLESTRADIOL [Concomitant]
     Active Substance: ETHINYL ESTRADIOL
  3. MIDAZOLAM [Concomitant]
     Active Substance: MIDAZOLAM\MIDAZOLAM HYDROCHLORIDE
  4. NALOXONE [Concomitant]
     Active Substance: NALOXONE
  5. SUFENTANIL [Concomitant]
     Active Substance: SUFENTANIL
  6. PRAVASTATIN. [Concomitant]
     Active Substance: PRAVASTATIN
  7. ZOPICLONE [Concomitant]
     Active Substance: ZOPICLONE
  8. ATROPINE. [Concomitant]
     Active Substance: ATROPINE
  9. CARBON DIOXIDE. [Suspect]
     Active Substance: CARBON DIOXIDE
     Indication: LAPAROSCOPY
     Route: 033
  10. VALSARTAN. [Concomitant]
     Active Substance: VALSARTAN
  11. TILIDINE [Concomitant]
     Active Substance: TILIDINE
  12. NEBIVOLOL. [Concomitant]
     Active Substance: NEBIVOLOL
  13. VALPROIC ACID. [Concomitant]
     Active Substance: VALPROIC ACID

REACTIONS (3)
  - Cerebral gas embolism [Recovered/Resolved]
  - Cerebrovascular accident [Recovering/Resolving]
  - Delayed recovery from anaesthesia [Recovered/Resolved]
